FAERS Safety Report 12206966 (Version 1)
Quarter: 2016Q1

REPORT INFORMATION
  Report Type: Spontaneous
  Country: US (occurrence: None)
  Receive Date: 20160323
  Receipt Date: 20160323
  Transmission Date: 20160526
  Serious: Yes (Other)
  Sender: FDA-Public Use
  Company Number: None

PATIENT
  Age: 63 Year
  Sex: Female
  Weight: 52.16 kg

DRUGS (3)
  1. LISINOPRIL. [Concomitant]
     Active Substance: LISINOPRIL
  2. METRONIDAZOLE 500MG (SUBSTITUTED FOR FLAGYL [Suspect]
     Active Substance: METRONIDAZOLE
     Indication: COLITIS
     Dosage: 500 MG 30 3XDAY BY MOUTH
     Route: 048
     Dates: start: 20160126, end: 20160128
  3. VITAMIN B12 [Concomitant]
     Active Substance: CYANOCOBALAMIN

REACTIONS (5)
  - Diplopia [None]
  - Hypertension [None]
  - Hypersensitivity [None]
  - Palpitations [None]
  - Abdominal discomfort [None]

NARRATIVE: CASE EVENT DATE: 20160127
